FAERS Safety Report 23994615 (Version 1)
Quarter: 2024Q2

REPORT INFORMATION
  Report Type: Report from Study
  Country: CN (occurrence: CN)
  Receive Date: 20240620
  Receipt Date: 20240620
  Transmission Date: 20240716
  Serious: Yes (Death)
  Sender: FDA-Public Use
  Company Number: CN-PFIZER INC-202400192280

PATIENT

DRUGS (6)
  1. GELATIN [Suspect]
     Active Substance: GELATIN
     Indication: Therapeutic embolisation
     Dosage: UNK
  2. EPIRUBICIN HYDROCHLORIDE [Suspect]
     Active Substance: EPIRUBICIN HYDROCHLORIDE
     Indication: Therapeutic embolisation
     Dosage: 40 TO 80 MG
  3. DONAFENIB [Suspect]
     Active Substance: DONAFENIB
     Indication: Hepatocellular carcinoma
     Dosage: INITIATED WITHIN A WEEK
     Route: 048
  4. 10-HYDROXYCAMPTOTHECIN [Suspect]
     Active Substance: 10-HYDROXYCAMPTOTHECIN
     Indication: Therapeutic embolisation
     Dosage: 10 TO 20 MG
  5. IODIZED OIL [Suspect]
     Active Substance: IODIZED OIL
     Indication: Therapeutic embolisation
     Dosage: 10-20 ML
  6. CAMRELIZUMAB [Suspect]
     Active Substance: CAMRELIZUMAB
     Indication: Hepatocellular carcinoma
     Dosage: UNK

REACTIONS (5)
  - Off label use [Fatal]
  - Device use issue [Fatal]
  - Therapeutic product ineffective for unapproved indication [Fatal]
  - Hepatic failure [Fatal]
  - Post embolisation syndrome [Fatal]
